FAERS Safety Report 12735761 (Version 1)
Quarter: 2016Q3

REPORT INFORMATION
  Report Type: Spontaneous
  Country: NO (occurrence: NO)
  Receive Date: 20160912
  Receipt Date: 20160912
  Transmission Date: 20161109
  Serious: Yes (Other)
  Sender: FDA-Public Use
  Company Number: NO-TEVA-689658ACC

PATIENT
  Age: 18 Year
  Sex: Male
  Weight: 71 kg

DRUGS (8)
  1. DEXAMETHASON [Concomitant]
     Active Substance: DEXAMETHASONE
     Indication: PRODUCT USED FOR UNKNOWN INDICATION
     Dosage: 12 MILLIGRAM DAILY;
     Route: 048
     Dates: start: 20160712, end: 20160715
  2. NEURONTIN [Concomitant]
     Active Substance: GABAPENTIN
     Indication: PAIN
     Dosage: 900 MILLIGRAM DAILY;
     Route: 048
     Dates: start: 201604
  3. OXYCODONE ACTAVIS [Concomitant]
     Indication: PAIN
     Dosage: 10 MILLIGRAM DAILY;
     Route: 048
     Dates: start: 201604
  4. APREPITANT. [Concomitant]
     Active Substance: APREPITANT
     Dosage: 16 MILLIGRAM DAILY;
     Route: 048
     Dates: start: 20160712, end: 20160715
  5. LEUCOVORIN. [Concomitant]
     Active Substance: LEUCOVORIN
     Indication: DRUG CLEARANCE DECREASED
     Dosage: UNK
     Dates: end: 20160713
  6. METHOTREXATE. [Suspect]
     Active Substance: METHOTREXATE
     Indication: OSTEOSARCOMA
     Dosage: 22900 MG, UNK
     Route: 042
     Dates: start: 20160712, end: 20160712
  7. LEUCOVORIN. [Concomitant]
     Active Substance: LEUCOVORIN
     Dosage: UNK
     Dates: start: 20160713
  8. VORAXAZE [Suspect]
     Active Substance: GLUCARPIDASE
     Indication: TOXICITY TO VARIOUS AGENTS
     Dosage: 2000 IU, SINGLE
     Dates: start: 20160713, end: 20160713

REACTIONS (4)
  - Rebound effect [Unknown]
  - Aspartate aminotransferase increased [Unknown]
  - Alanine aminotransferase increased [Unknown]
  - Renal failure [Recovered/Resolved]

NARRATIVE: CASE EVENT DATE: 20160713
